FAERS Safety Report 4781575-X (Version None)
Quarter: 2005Q3

REPORT INFORMATION
  Report Type: 
  Country: None (occurrence: None)
  Receive Date: 20050927
  Receipt Date: 20050914
  Transmission Date: 20060218
  Serious: Yes (Hospitalization, Other)
  Sender: FDA-Public Use
  Company Number: 2005BI009464

PATIENT
  Age: 20 Year
  Sex: Male
  Weight: 72.5 kg

DRUGS (12)
  1. NATALIZUMAB (NATALIZUMAB) [Suspect]
     Indication: CROHN'S DISEASE
     Dosage: 300 MG; QM; IV
     Route: 042
     Dates: start: 20030623, end: 20050125
  2. PARACETAMOL [Concomitant]
  3. FEXOFENADINE HCL [Concomitant]
  4. PREDNISONE [Concomitant]
  5. LOSEC [Concomitant]
  6. CIPROFLOXACIN [Concomitant]
  7. MYCOSTATIN [Concomitant]
  8. AZATHIOPRINE [Concomitant]
  9. MOVICOL [Concomitant]
  10. OSTEO 500 [Concomitant]
  11. PENTASA [Concomitant]
  12. PREDNISONE [Concomitant]

REACTIONS (7)
  - ABDOMINAL ABSCESS [None]
  - ADHESIOLYSIS [None]
  - CONDITION AGGRAVATED [None]
  - CROHN'S DISEASE [None]
  - INTESTINAL ANASTOMOTIC LEAK [None]
  - INTESTINAL OBSTRUCTION [None]
  - TUBERCULOSIS GASTROINTESTINAL [None]
